FAERS Safety Report 4599373-9 (Version None)
Quarter: 2005Q1

REPORT INFORMATION
  Report Type: 
  Country: None (occurrence: None)
  Receive Date: 20050303
  Receipt Date: 20050218
  Transmission Date: 20050727
  Serious: Yes (Hospitalization, Other)
  Sender: FDA-Public Use
  Company Number: 2005S1000637

PATIENT
  Age: 77 Year
  Sex: Female
  Weight: 72.5755 kg

DRUGS (7)
  1. TEMAZEPAM [Suspect]
     Indication: SLEEP DISORDER
     Dosage: 30 MG PRN THEN 90 MG X 1 DOSE, ORAL
     Route: 048
  2. GABAPENTIN [Concomitant]
  3. CONJUGATED ESTROGENS [Concomitant]
  4. VALSARTAN [Concomitant]
  5. ASPIRIN [Concomitant]
  6. LEVOTHYROXINE [Concomitant]
  7. MULTI-VITAMIN [Concomitant]

REACTIONS (4)
  - ARTERIAL STENOSIS [None]
  - MEDICATION ERROR [None]
  - SOMNOLENCE [None]
  - SYNCOPE [None]
